FAERS Safety Report 14264702 (Version 7)
Quarter: 2020Q2

REPORT INFORMATION
  Report Type: Spontaneous
  Country: US (occurrence: US)
  Receive Date: 20171208
  Receipt Date: 20200416
  Transmission Date: 20200713
  Serious: Yes (Other)
  Sender: FDA-Public Use
  Company Number: US-VIFOR (INTERNATIONAL) INC.-VIT-2017-09153

PATIENT
  Age: 76 Year
  Sex: Female
  Weight: 80.81 kg

DRUGS (29)
  1. CELEXA [Concomitant]
     Active Substance: CITALOPRAM HYDROBROMIDE
  2. PROLIA [Concomitant]
     Active Substance: DENOSUMAB
  3. ARANESP [Concomitant]
     Active Substance: DARBEPOETIN ALFA
  4. XANAX [Concomitant]
     Active Substance: ALPRAZOLAM
  5. DOXYCYCLINE HYCLATE. [Concomitant]
     Active Substance: DOXYCYCLINE HYCLATE
  6. SENNA [Concomitant]
     Active Substance: SENNA LEAF\SENNOSIDES\SENNOSIDES A AND B
  7. VITAMIN D3 [Concomitant]
     Active Substance: CHOLECALCIFEROL
  8. VELTASSA [Suspect]
     Active Substance: PATIROMER
     Indication: HYPERKALAEMIA
     Route: 048
     Dates: start: 20170224
  9. VELTASSA [Suspect]
     Active Substance: PATIROMER
     Route: 048
  10. MELATONIN [Concomitant]
     Active Substance: MELATONIN
  11. ASPIRIN. [Concomitant]
     Active Substance: ASPIRIN
  12. SODIUM BICARBONATE. [Concomitant]
     Active Substance: SODIUM BICARBONATE
  13. PLAQUENIL [Concomitant]
     Active Substance: HYDROXYCHLOROQUINE SULFATE
  14. DICYCLOMINE HYDROCHLORIDE. [Concomitant]
     Active Substance: DICYCLOMINE HYDROCHLORIDE
  15. CARVEDILOL. [Concomitant]
     Active Substance: CARVEDILOL
  16. FIBER LAX [Concomitant]
     Active Substance: CALCIUM POLYCARBOPHIL
  17. COLACE CLEAR [Concomitant]
     Active Substance: DOCUSATE SODIUM
  18. URSODIOL. [Concomitant]
     Active Substance: URSODIOL
  19. PROBIOTIC [Concomitant]
     Active Substance: PROBIOTICS NOS
  20. OMEPRAZOLE. [Concomitant]
     Active Substance: OMEPRAZOLE
  21. FIBERCON [Concomitant]
     Active Substance: CALCIUM POLYCARBOPHIL
  22. TORSEMIDE. [Concomitant]
     Active Substance: TORSEMIDE
  23. TYLENOL [Concomitant]
     Active Substance: ACETAMINOPHEN
  24. FOLIC ACID. [Concomitant]
     Active Substance: FOLIC ACID
  25. CITRACAL PETITES/ VITAMIN D [Concomitant]
  26. SIMVASTATIN. [Concomitant]
     Active Substance: SIMVASTATIN
  27. TRAZODONE HYDROCHLORIDE. [Concomitant]
     Active Substance: TRAZODONE HYDROCHLORIDE
  28. CALCITRIOL. [Concomitant]
     Active Substance: CALCITRIOL
  29. ALPRAZOLAM. [Concomitant]
     Active Substance: ALPRAZOLAM

REACTIONS (10)
  - Gastrointestinal disorder [Recovered/Resolved]
  - Fracture [Recovered/Resolved]
  - Urinary tract infection [Recovered/Resolved]
  - Dyspnoea [Unknown]
  - Pneumonia [Unknown]
  - Cough [Not Recovered/Not Resolved]
  - Off label use [Unknown]
  - Product dose omission [Unknown]
  - Influenza [Recovered/Resolved]
  - Nasopharyngitis [Recovered/Resolved]

NARRATIVE: CASE EVENT DATE: 202002
